FAERS Safety Report 8776030 (Version 6)
Quarter: 2014Q2

REPORT INFORMATION
  Report Type: Spontaneous
  Country: FR (occurrence: FR)
  Receive Date: 20120910
  Receipt Date: 20140415
  Transmission Date: 20141212
  Serious: Yes (Hospitalization, Other)
  Sender: FDA-Public Use
  Company Number: FR-US-EMD SERONO, INC.-7158919

PATIENT
  Age: 39 Year
  Sex: Female
  Weight: 63 kg

DRUGS (1)
  1. REBIF [Suspect]
     Indication: RELAPSING-REMITTING MULTIPLE SCLEROSIS
     Route: 058
     Dates: start: 201202, end: 20120806

REACTIONS (4)
  - Posterior reversible encephalopathy syndrome [Recovered/Resolved]
  - Epilepsy [Recovered/Resolved]
  - Hypertensive crisis [Recovered/Resolved]
  - Haemolytic uraemic syndrome [Recovered/Resolved with Sequelae]
